FAERS Safety Report 6327843-1 (Version None)
Quarter: 2009Q3

REPORT INFORMATION
  Report Type: 
  Country: None (occurrence: None)
  Receive Date: 20090824
  Receipt Date: 20090818
  Transmission Date: 20100115
  Serious: Yes (Death)
  Sender: FDA-Public Use
  Company Number: 2009US003158

PATIENT
  Age: 3 Month

DRUGS (1)
  1. AMBISOME [Suspect]
     Indication: FUNGAL INFECTION
     Dosage: 2.5 MG/KG, IV NOS
     Route: 042
     Dates: start: 20090730

REACTIONS (1)
  - WHITE BLOOD CELL COUNT DECREASED [None]
